FAERS Safety Report 9452915 (Version 1)
Quarter: 2013Q3

REPORT INFORMATION
  Report Type: Spontaneous
  Country: IN (occurrence: IN)
  Receive Date: 20130812
  Receipt Date: 20130812
  Transmission Date: 20140515
  Serious: Yes (Other)
  Sender: FDA-Public Use
  Company Number: IN-ROCHE-1259479

PATIENT
  Age: 57 Year
  Sex: Male
  Weight: 68 kg

DRUGS (1)
  1. RISTOVA [Suspect]
     Indication: NON-HODGKIN^S LYMPHOMA
     Dosage: FREQUENCY: ONCE
     Route: 042
     Dates: start: 20130805, end: 20130805

REACTIONS (4)
  - Chest discomfort [Recovered/Resolved]
  - Dyspnoea [Recovered/Resolved]
  - Flushing [Recovered/Resolved]
  - Pruritus generalised [Recovered/Resolved]
